FAERS Safety Report 8799541 (Version 1)
Quarter: 2012Q4

REPORT INFORMATION
  Report Type: 
  Country: US (occurrence: US)
  Receive Date: 20120919
  Receipt Date: 20120919
  Transmission Date: 20130627
  Serious: No
  Sender: FDA-Public Use
  Company Number: US-PFIZER INC-2012228477

PATIENT
  Age: 70 Year
  Sex: Female
  Weight: 75.74 kg

DRUGS (9)
  1. TYGACIL [Suspect]
     Indication: PNEUMONIA KLEBSIELLA
     Dosage: 100 mg, 1x/day
     Route: 042
     Dates: start: 20120910
  2. TYGACIL [Suspect]
     Indication: PROTEUS INFECTION
     Dosage: 50 mg, 2x/day
     Route: 042
  3. TYGACIL [Suspect]
     Indication: URINARY TRACT INFECTION
  4. LEVOTHYROXINE [Concomitant]
     Dosage: UNK
  5. DOCUSATE [Concomitant]
     Dosage: UNK
  6. PANTOPRAZOLE [Concomitant]
     Dosage: UNK
  7. JANUVIA [Concomitant]
     Dosage: UNK
  8. TORSEMIDE [Concomitant]
     Dosage: UNK
  9. MULTIVITAMINS [Concomitant]
     Dosage: UNK

REACTIONS (1)
  - Back pain [Unknown]
